FAERS Safety Report 4269052-6 (Version None)
Quarter: 2004Q1

REPORT INFORMATION
  Report Type: 
  Country: None (occurrence: None)
  Receive Date: 20040108
  Receipt Date: 20000405
  Transmission Date: 20041129
  Serious: No
  Sender: FDA-Public Use
  Company Number: 7016

PATIENT
  Age: 27 Year
  Sex: Female

DRUGS (5)
  1. DOXYCYCLINE [Suspect]
     Indication: PELVIC INFLAMMATORY DISEASE
     Dosage: 100 MG PO
     Route: 048
     Dates: start: 20000315, end: 20000319
  2. CARBAMAZEPINE [Suspect]
     Indication: EPILEPSY
     Dosage: 300 MG BID PO
     Route: 048
     Dates: start: 19980101
  3. LEVONORGESTREL/ETHINYLOESTRADIOL [Concomitant]
  4. SALBUTAMOL [Concomitant]
  5. BECLOMETHASONE DIPROPIONATE [Concomitant]

REACTIONS (2)
  - CONVULSION [None]
  - DRUG INTERACTION [None]
